FAERS Safety Report 6717557-8 (Version None)
Quarter: 2010Q2

REPORT INFORMATION
  Report Type: 
  Country: None (occurrence: None)
  Receive Date: 20100510
  Receipt Date: 20100506
  Transmission Date: 20101027
  Serious: Yes (Hospitalization)
  Sender: FDA-Public Use
  Company Number: JP-ASTRAZENECA-2010SE20617

PATIENT
  Age: 71 Year
  Sex: Male

DRUGS (4)
  1. CANDESARTAN CILEXETIL AND HYDROCHLOROTHIAZIDE [Suspect]
     Indication: HYPERTENSION
     Dosage: 16 MG/12,5 MG DAILY
     Route: 048
     Dates: end: 20090630
  2. ASPIRIN [Interacting]
     Route: 048
     Dates: start: 20090601
  3. IBUPROFEN [Interacting]
     Dosage: DAILY, AS REQUIRED
     Route: 048
     Dates: end: 20090630
  4. METFORMIN HCL [Interacting]
     Indication: TYPE 2 DIABETES MELLITUS
     Dosage: DAILY
     Route: 048
     Dates: end: 20090630

REACTIONS (1)
  - RENAL FAILURE ACUTE [None]
